FAERS Safety Report 23316130 (Version 1)
Quarter: 2023Q4

REPORT INFORMATION
  Report Type: Spontaneous
  Country: BR (occurrence: BR)
  Receive Date: 20231219
  Receipt Date: 20231219
  Transmission Date: 20240110
  Serious: Yes (Hospitalization, Other)
  Sender: FDA-Public Use
  Company Number: BR-SA-SAC20231205000282

PATIENT
  Age: 3 Year
  Sex: Male

DRUGS (1)
  1. SABRIL [Suspect]
     Active Substance: VIGABATRIN
     Indication: Infantile spasms
     Dosage: 1 DF
     Route: 065

REACTIONS (3)
  - Muscle spasms [Unknown]
  - Seizure [Unknown]
  - Poor quality product administered [Unknown]
